FAERS Safety Report 5627422-5 (Version None)
Quarter: 2008Q1

REPORT INFORMATION
  Report Type: 
  Country: None (occurrence: None)
  Receive Date: 20080214
  Receipt Date: 20080214
  Transmission Date: 20080703
  Serious: Yes (Other)
  Sender: FDA-Public Use
  Company Number: None

PATIENT
  Age: 16 Year
  Sex: Male
  Weight: 85.7298 kg

DRUGS (1)
  1. TAMIFLU [Suspect]
     Indication: INFLUENZA
     Dosage: 75MG BID PO
     Route: 048
     Dates: start: 20080208, end: 20080212

REACTIONS (9)
  - AGITATION [None]
  - DECREASED INTEREST [None]
  - DISORIENTATION [None]
  - FEELING ABNORMAL [None]
  - IRRITABILITY [None]
  - MEMORY IMPAIRMENT [None]
  - ORAL INTAKE REDUCED [None]
  - SOMATOFORM DISORDER NEUROLOGIC [None]
  - THINKING ABNORMAL [None]
